FAERS Safety Report 17188604 (Version 2)
Quarter: 2020Q1

REPORT INFORMATION
  Report Type: Spontaneous
  Country: US (occurrence: US)
  Receive Date: 20191222
  Receipt Date: 20200106
  Transmission Date: 20200409
  Serious: Yes (Death, Other)
  Sender: FDA-Public Use
  Company Number: US-MTPC-MTDA2019-0082662

PATIENT

DRUGS (2)
  1. RADICAVA [Suspect]
     Active Substance: EDARAVONE
     Dosage: 60 MG OVER A 60MIN PERIOD, QD FOR 10 DAYS OUT OF 14-DAY PERIODS FOLLOWED BY 14-DAY DRUG-FREE PERIOD
     Route: 042
  2. RADICAVA [Suspect]
     Active Substance: EDARAVONE
     Indication: AMYOTROPHIC LATERAL SCLEROSIS
     Dosage: 60MG OVER A 60MIN PERIOD, QD FOR 14 DAYS FOLLOWED BY A 14-DAY DRUG-FREE PERIOD
     Route: 042

REACTIONS (1)
  - Respiratory failure [Fatal]
